FAERS Safety Report 23427854 (Version 1)
Quarter: 2024Q1

REPORT INFORMATION
  Report Type: Spontaneous
  Country: None (occurrence: FR)
  Receive Date: 20240122
  Receipt Date: 20240122
  Transmission Date: 20240410
  Serious: Yes (Life-Threatening)
  Sender: FDA-Public Use
  Company Number: FR-B.Braun Medical Inc.-2151743

PATIENT
  Age: 54 Year
  Sex: Female
  Weight: 44 kg

DRUGS (10)
  1. ACETAMINOPHEN [Suspect]
     Active Substance: ACETAMINOPHEN
     Indication: Abdominal pain
     Dates: start: 20231125
  2. DIETARY SUPPLEMENT [Suspect]
     Active Substance: DIETARY SUPPLEMENT
  3. NEFOPAM [Suspect]
     Active Substance: NEFOPAM
  4. PANTOPRAZOLE [Suspect]
     Active Substance: PANTOPRAZOLE
  5. AMINO ACIDS\DEXTROSE\ELECTROLYTES NOS [Suspect]
     Active Substance: AMINO ACIDS\DEXTROSE\ELECTROLYTES NOS
  6. PHLOROGLUCINOL [Suspect]
     Active Substance: PHLOROGLUCINOL
  7. DIETARY SUPPLEMENT [Suspect]
     Active Substance: DIETARY SUPPLEMENT
  8. CYAMEMAZINE [Suspect]
     Active Substance: CYAMEMAZINE
  9. TRANXENE [Suspect]
     Active Substance: CLORAZEPATE DIPOTASSIUM
  10. XOLAIR [Suspect]
     Active Substance: OMALIZUMAB

REACTIONS (1)
  - Pulmonary embolism [None]
